FAERS Safety Report 18199460 (Version 1)
Quarter: 2020Q3

REPORT INFORMATION
  Report Type: Report from Study
  Country: CA (occurrence: CA)
  Receive Date: 20200826
  Receipt Date: 20200826
  Transmission Date: 20201103
  Serious: Yes (Other)
  Sender: FDA-Public Use
  Company Number: CA-COVIS PHARMA B.V.-2020COV00401

PATIENT
  Age: 54 Year
  Sex: Male
  Weight: 83 kg

DRUGS (12)
  1. RISEDRONATE [Concomitant]
     Active Substance: RISEDRONATE SODIUM
     Dosage: 150 MG, 1X/WEEK
  2. PULMICORT TURBUHALER [Suspect]
     Active Substance: BUDESONIDE
     Dosage: 1 DF, 2X/DAY
  3. SINGULAIR [Suspect]
     Active Substance: MONTELUKAST SODIUM
     Dosage: 10 MG, 1X/DAY
     Route: 048
  4. SYMBICORT [Suspect]
     Active Substance: BUDESONIDE\FORMOTEROL FUMARATE DIHYDRATE
     Dosage: 4 DF, 2X/DAY
  5. PREDNISONE. [Suspect]
     Active Substance: PREDNISONE
     Indication: DYSPNOEA
     Dosage: 15 MG, 1X/DAY
     Route: 048
  6. VITAMIN D [Concomitant]
     Active Substance: VITAMIN D NOS
     Dosage: 2000 DF, 1X/DAY
  7. MEPOLIZUMAB [Suspect]
     Active Substance: MEPOLIZUMAB
     Indication: ASTHMA
     Dosage: 100 MG
     Route: 042
  8. SPIRIVA [Suspect]
     Active Substance: TIOTROPIUM BROMIDE MONOHYDRATE
  9. METHOTREXATE. [Suspect]
     Active Substance: METHOTREXATE
  10. SALBUTAMOL SULFATE [Suspect]
     Active Substance: ALBUTEROL SULFATE
  11. CICLESONIDE [Suspect]
     Active Substance: CICLESONIDE
     Dosage: 2 DF, 1X/DAY
     Route: 048
  12. NASONEX [Suspect]
     Active Substance: MOMETASONE FUROATE
     Dosage: 2 DF, 1X/DAY

REACTIONS (9)
  - Therapeutic product effect incomplete [Recovered/Resolved]
  - Left ventricular dysfunction [Recovered/Resolved]
  - Obstructive airways disorder [Recovered/Resolved]
  - Cough [Recovered/Resolved]
  - Dyspnoea [Recovered/Resolved]
  - Asthma [Recovered/Resolved]
  - Cardiomyopathy [Recovered/Resolved]
  - Chest discomfort [Recovered/Resolved]
  - Eosinophilic granulomatosis with polyangiitis [Recovered/Resolved]
